FAERS Safety Report 5407735-2 (Version None)
Quarter: 2007Q3

REPORT INFORMATION
  Report Type: 
  Country: None (occurrence: None)
  Receive Date: 20070713
  Receipt Date: 20070601
  Transmission Date: 20080115
  Serious: No
  Sender: FDA-Public Use
  Company Number: 2007SP002069

PATIENT
  Age: 64 Year
  Sex: Male
  Weight: 54.4316 kg

DRUGS (5)
  1. LUNESTA [Suspect]
     Dosage: 3 MG;PRN;ORAL
     Route: 048
     Dates: start: 20060901
  2. METOPROLOL SUCCINATE [Concomitant]
  3. SIMVASTATIN [Concomitant]
  4. ZOLOFT [Concomitant]
  5. OXYTROL [Concomitant]

REACTIONS (1)
  - DYSGEUSIA [None]
